FAERS Safety Report 26137329 (Version 1)
Quarter: 2025Q4

REPORT INFORMATION
  Report Type: Spontaneous
  Country: EU (occurrence: EU)
  Receive Date: 20251209
  Receipt Date: 20251209
  Transmission Date: 20260117
  Serious: Yes (Other)
  Sender: MYLAN
  Company Number: EU-AMGEN-FRASP2025232022

PATIENT
  Age: 77 Year
  Sex: Male

DRUGS (12)
  1. POMALIDOMIDE [Suspect]
     Active Substance: POMALIDOMIDE
     Indication: Plasma cell myeloma refractory
     Dosage: UNK
  2. POMALIDOMIDE [Suspect]
     Active Substance: POMALIDOMIDE
     Dosage: UNK
     Route: 065
  3. POMALIDOMIDE [Suspect]
     Active Substance: POMALIDOMIDE
     Dosage: UNK
     Route: 065
  4. POMALIDOMIDE [Suspect]
     Active Substance: POMALIDOMIDE
     Dosage: UNK
  5. DEXAMETHASONE [Suspect]
     Active Substance: DEXAMETHASONE
     Indication: Plasma cell myeloma refractory
     Dosage: UNK
  6. DEXAMETHASONE [Suspect]
     Active Substance: DEXAMETHASONE
     Dosage: UNK
     Route: 065
  7. DEXAMETHASONE [Suspect]
     Active Substance: DEXAMETHASONE
     Dosage: UNK
     Route: 065
  8. DEXAMETHASONE [Suspect]
     Active Substance: DEXAMETHASONE
     Dosage: UNK
  9. KYPROLIS [Suspect]
     Active Substance: CARFILZOMIB
     Indication: Plasma cell myeloma refractory
     Dosage: UNK, DOSAGE1: UNIT=VIAL - LYOPHILIZED
  10. KYPROLIS [Suspect]
     Active Substance: CARFILZOMIB
     Dosage: UNK, DOSAGE1: UNIT=VIAL - LYOPHILIZED
     Route: 065
  11. KYPROLIS [Suspect]
     Active Substance: CARFILZOMIB
     Dosage: UNK, DOSAGE1: UNIT=VIAL - LYOPHILIZED
     Route: 065
  12. KYPROLIS [Suspect]
     Active Substance: CARFILZOMIB
     Dosage: UNK, DOSAGE1: UNIT=VIAL - LYOPHILIZED

REACTIONS (3)
  - Electrocardiogram QT prolonged [Unknown]
  - Atrial fibrillation [Unknown]
  - Off label use [Unknown]
